FAERS Safety Report 7266996-8 (Version None)
Quarter: 2011Q1

REPORT INFORMATION
  Report Type: 
  Country: None (occurrence: None)
  Receive Date: 20110121
  Receipt Date: 20110113
  Transmission Date: 20110831
  Serious: Yes (Life-Threatening, Hospitalization, Other)
  Sender: FDA-Public Use
  Company Number: 2010SP001304

PATIENT
  Age: 13 Year
  Sex: Male
  Weight: 49.4 kg

DRUGS (4)
  1. MUCINEX [Concomitant]
  2. ZITHROMAC Z-PACK [Concomitant]
  3. CICLESONIDE [Suspect]
     Indication: RHINITIS PERENNIAL
     Dosage: 160 UG; NASAL
     Route: 045
     Dates: start: 20091016, end: 20100422
  4. XYZAL [Concomitant]

REACTIONS (6)
  - AUTOIMMUNE THROMBOCYTOPENIA [None]
  - CONTUSION [None]
  - JOINT INJURY [None]
  - CONDITION AGGRAVATED [None]
  - HAEMARTHROSIS [None]
  - EPISTAXIS [None]
